FAERS Safety Report 17616922 (Version 1)
Quarter: 2020Q2

REPORT INFORMATION
  Report Type: Spontaneous
  Country: FR (occurrence: FR)
  Receive Date: 20200402
  Receipt Date: 20200402
  Transmission Date: 20200713
  Serious: Yes (Death)
  Sender: FDA-Public Use
  Company Number: FR-IGSA-SR10010084

PATIENT

DRUGS (20)
  1. FLEBOGAMMA DIF [Suspect]
     Active Substance: HUMAN IMMUNOGLOBULIN G
     Indication: PRODUCT DISPENSING ERROR
     Dosage: 60 G, SINGLE
     Route: 042
     Dates: start: 20190629, end: 20190630
  2. OXYNORM [Concomitant]
     Active Substance: OXYCODONE HYDROCHLORIDE
     Dosage: 5 MG, Q.4H.
     Route: 042
  3. ULTRA LEVURE [Concomitant]
     Active Substance: SACCHAROMYCES CEREVISIAE
     Dosage: UNK UNK, TID
  4. CORDARONE [Concomitant]
     Active Substance: AMIODARONE HYDROCHLORIDE
     Dosage: UNK UNK, QID
  5. CORDARONE [Concomitant]
     Active Substance: AMIODARONE HYDROCHLORIDE
     Dosage: UNK, QD
  6. CALCIUM CHLORIDE                   /07362502/ [Concomitant]
     Dosage: UNK, BID
  7. FLEBOGAMMA DIF [Suspect]
     Active Substance: HUMAN IMMUNOGLOBULIN G
     Indication: HYPOALBUMINAEMIA
  8. INSULIN                            /00646001/ [Concomitant]
     Active Substance: INSULIN NOS
     Dosage: UNK, PRN
     Route: 042
  9. GLUCOSE [Concomitant]
     Active Substance: DEXTROSE
     Dosage: 1000 ML, QD
     Route: 042
  10. INEXIUM                            /01479302/ [Concomitant]
     Active Substance: ESOMEPRAZOLE MAGNESIUM
     Dosage: 40 MG, BID
     Route: 042
  11. FOLIC ACID. [Concomitant]
     Active Substance: FOLIC ACID
     Dosage: 50 MG, QD
     Route: 042
  12. TRAMADOL                           /00599202/ [Concomitant]
     Active Substance: TRAMADOL
     Dosage: 200 MG, UNK
     Route: 042
  13. ZELITREX [Concomitant]
     Active Substance: VALACYCLOVIR HYDROCHLORIDE
     Dosage: 500 MG, QD
     Route: 048
  14. VITAMIN K [Concomitant]
     Active Substance: PHYTONADIONE
     Dosage: UNK, QD
     Route: 042
  15. SOLUTIONS FOR PARENTERAL NUTRITION [Concomitant]
     Active Substance: AMINO ACIDS\DEXTROSE\ELECTROLYTES NOS
     Dosage: 80 ML, Q.H.
  16. VITAMINS                           /00067501/ [Concomitant]
     Active Substance: VITAMINS
     Route: 042
  17. ATARAX [Concomitant]
     Active Substance: HYDROXYZINE HYDROCHLORIDE
     Dosage: 50 MG, QD
     Route: 042
  18. ODEFSEY [Concomitant]
     Active Substance: EMTRICITABINE\RILPIVIRINE HYDROCHLORIDE\TENOFOVIR ALAFENAMIDE FUMARATE
     Dosage: UNK UNK, QD
     Route: 048
  19. ALBUNORM [Concomitant]
     Active Substance: ALBUMIN HUMAN
     Indication: HYPOALBUMINAEMIA
     Dosage: UNK
     Route: 011
  20. NORADRENALIN                       /00127501/ [Concomitant]
     Active Substance: NOREPINEPHRINE\NOREPINEPHRINE BITARTRATE
     Dosage: UNK, PRN
     Route: 042

REACTIONS (5)
  - Shock [Not Recovered/Not Resolved]
  - Wrong drug [Not Recovered/Not Resolved]
  - Product dispensing error [Not Recovered/Not Resolved]
  - Multiple organ dysfunction syndrome [Fatal]
  - Product availability issue [Not Recovered/Not Resolved]

NARRATIVE: CASE EVENT DATE: 20190629
